FAERS Safety Report 8894728 (Version 2)
Quarter: 2012Q4

REPORT INFORMATION
  Report Type: Report from Study
  Country: BE (occurrence: BE)
  Receive Date: 20121108
  Receipt Date: 20121129
  Transmission Date: 20130627
  Serious: Yes (Hospitalization)
  Sender: FDA-Public Use
  Company Number: BE-009507513-2010SP039593

PATIENT
  Age: 76 Year
  Sex: Male
  Weight: 84 kg

DRUGS (9)
  1. PEGINTERFERON ALFA-2B [Suspect]
     Indication: HEPATITIS C
     Dosage: 1200 mg, QD
     Dates: start: 20081002
  2. PEGINTRON [Suspect]
     Indication: HEPATITIS C
     Dosage: UNK UNK, QW
     Dates: start: 20081002
  3. NEXIUM [Concomitant]
     Indication: OESOPHAGITIS
     Dosage: 20 mg, QD
  4. ASAFLOW [Concomitant]
     Indication: CARDIOVASCULAR EVENT PROPHYLAXIS
     Dosage: 160 mg, QD
     Dates: start: 20100119
  5. AMARYLLE [Concomitant]
     Indication: DIABETES MELLITUS
     Dosage: 1 / DAY
  6. ALLOPURINOL [Concomitant]
     Dosage: 300 mg, QD
  7. ALTHIAZIDE (+) SPIRONOLACTONE [Concomitant]
  8. TRITACE [Concomitant]
     Indication: HYPERTENSION
     Dosage: 5 mg, qd
     Dates: start: 20100119, end: 20100420
  9. APOCARD [Concomitant]
     Indication: HYPERTENSION
     Dosage: 200 mg, qd
     Dates: start: 20100119, end: 20100420

REACTIONS (2)
  - Ventricular tachycardia [Recovered/Resolved]
  - Palpitations [Recovered/Resolved]
